FAERS Safety Report 5325781-4 (Version None)
Quarter: 2007Q2

REPORT INFORMATION
  Report Type: 
  Country: None (occurrence: None)
  Receive Date: 20070510
  Receipt Date: 20070427
  Transmission Date: 20071010
  Serious: Yes (Hospitalization)
  Sender: FDA-Public Use
  Company Number: 155834ISR

PATIENT
  Age: 40 Year
  Sex: Female

DRUGS (1)
  1. COPAXONE [Suspect]
     Indication: MULTIPLE SCLEROSIS
     Dosage: 20 MG (10 MG, 1 IN 1 D) , SUBCUTANEOUS
     Route: 058
     Dates: start: 20061001, end: 20070201

REACTIONS (3)
  - GUILLAIN-BARRE SYNDROME [None]
  - PARAESTHESIA [None]
  - PARAESTHESIA ORAL [None]
